FAERS Safety Report 6520440-4 (Version None)
Quarter: 2009Q4

REPORT INFORMATION
  Report Type: 
  Country: None (occurrence: None)
  Receive Date: 20091229
  Receipt Date: 20091222
  Transmission Date: 20100525
  Serious: Yes (Death, Hospitalization, Disabling, Other)
  Sender: FDA-Public Use
  Company Number: PHHY2009JP54977

PATIENT
  Sex: Female
  Weight: 45 kg

DRUGS (19)
  1. FEMARA [Suspect]
     Indication: BREAST CANCER
     Dosage: 2.5 MG DAILY
     Route: 048
     Dates: start: 20090722, end: 20091029
  2. ZOMETA [Suspect]
     Indication: METASTASES TO BONE
     Dosage: 4 MG PER ADMINISTRATION
     Route: 042
     Dates: start: 20070601, end: 20091001
  3. BISPHONAL [Suspect]
     Indication: BREAST CANCER
     Dosage: UNK
     Route: 042
     Dates: start: 20060301, end: 20080601
  4. ANTRRACYCLINE DERIVATIVES AND PREPARATIONS [Concomitant]
  5. ANTINEOPLASTIC PREPARATIONS EXTRACTED FROM PLANTS [Concomitant]
  6. NAVELBINE [Concomitant]
     Indication: BREAST CANCER
     Dosage: 20 MG, UNK
     Route: 042
     Dates: start: 20090304, end: 20090722
  7. TAMOXIFEN CITRATE [Concomitant]
  8. FARESTON ^LAAKEFARMOS^ [Concomitant]
     Route: 048
  9. TAXOL [Concomitant]
     Indication: CHEMOTHERAPY
     Dosage: 100 MG, UNK
     Route: 041
     Dates: start: 20071031, end: 20090304
  10. DIPHENHYDRAMINE HCL [Concomitant]
     Indication: CHEMOTHERAPY
     Dosage: 50 MG, UNK
     Route: 048
     Dates: start: 20071031, end: 20090304
  11. NORVASC [Concomitant]
     Indication: HYPERTENSION
     Dosage: 215 MG, UNK
     Route: 048
  12. ASPIRIN [Concomitant]
     Indication: HYPERTENSION
     Dosage: 100 MG, UNK
     Route: 048
  13. PURSENNID                               /SWE/ [Concomitant]
     Indication: CONSTIPATION
     Dosage: 12 MG, UNK
     Route: 048
  14. NASEA [Concomitant]
     Indication: CHEMOTHERAPY
     Dosage: 0.1 MG, UNK
     Route: 048
     Dates: start: 20071031, end: 20090304
  15. MAGNESIUM OXIDE [Concomitant]
     Indication: CONSTIPATION
     Dosage: 2 G, UNK
     Route: 048
  16. GASTER [Concomitant]
     Indication: CHEMOTHERAPY
     Dosage: 20 MG, UNK
     Route: 041
     Dates: start: 20071031, end: 20090304
  17. DECADRON                                /CAN/ [Concomitant]
     Indication: CHEMOTHERAPY
     Dosage: 8 MG, UNK
     Route: 041
     Dates: start: 20071031, end: 20090304
  18. NOLVADEX [Concomitant]
     Indication: BREAST CANCER
     Dosage: 1 MG, UNK
     Route: 048
     Dates: start: 20060301, end: 20071001
  19. DUROTEP JANSSEN [Concomitant]
     Indication: PAIN
     Dosage: 18 MG, UNK
     Route: 062
     Dates: start: 20060601, end: 20091120

REACTIONS (6)
  - ABSCESS ORAL [None]
  - ASPARTATE AMINOTRANSFERASE INCREASED [None]
  - BLOOD POTASSIUM INCREASED [None]
  - BREAST CANCER RECURRENT [None]
  - C-REACTIVE PROTEIN INCREASED [None]
  - OSTEOMYELITIS [None]
